FAERS Safety Report 25795981 (Version 1)
Quarter: 2025Q3

REPORT INFORMATION
  Report Type: Spontaneous
  Country: US (occurrence: US)
  Receive Date: 20250912
  Receipt Date: 20250912
  Transmission Date: 20251021
  Serious: Yes (Other)
  Sender: INSUD PHARMA
  Company Number: US-INSUD PHARMA-2509US07321

PATIENT

DRUGS (1)
  1. SLYND [Suspect]
     Active Substance: DROSPIRENONE
     Indication: Menstrual cycle management
     Route: 048

REACTIONS (2)
  - Uterine haemorrhage [Not Recovered/Not Resolved]
  - Product use in unapproved indication [Unknown]
